FAERS Safety Report 8254652-9 (Version None)
Quarter: 2012Q2

REPORT INFORMATION
  Report Type: 
  Country: None (occurrence: None)
  Receive Date: 20120403
  Receipt Date: 20120326
  Transmission Date: 20120825
  Serious: Yes (Hospitalization, Other)
  Sender: FDA-Public Use
  Company Number: US-BAYER-2011-040595

PATIENT
  Age: 24 Year
  Sex: Female
  Weight: 68.027 kg

DRUGS (8)
  1. NYQUIL [Concomitant]
     Dosage: UNK
     Route: 048
     Dates: start: 20070206
  2. CIPROFLOXACIN HCL [Concomitant]
     Indication: URINARY TRACT INFECTION
     Dosage: UNK
     Route: 048
     Dates: start: 20070101
  3. TYLENOL 1 [Concomitant]
     Indication: BACK PAIN
     Dosage: 2 CAPSULES, TID
     Route: 048
     Dates: start: 20070207
  4. IRON [Concomitant]
     Route: 048
  5. MESALAMINE [Concomitant]
     Route: 048
  6. YASMIN [Suspect]
     Dosage: UNK
     Dates: start: 20060927, end: 20070207
  7. PREDNISONE TAB [Concomitant]
     Indication: CROHN'S DISEASE
     Dosage: 15 MG, QD
     Route: 048
     Dates: start: 20061101, end: 20090901
  8. PENTASA [Concomitant]
     Indication: CROHN'S DISEASE
     Dosage: 2 GM, QD
     Route: 048
     Dates: start: 20061201, end: 20070901

REACTIONS (16)
  - PLEURAL EFFUSION [None]
  - PULMONARY INFARCTION [None]
  - LOBAR PNEUMONIA [None]
  - FLANK PAIN [None]
  - LUNG DISORDER [None]
  - INJURY [None]
  - FEAR [None]
  - CIRCULATORY COLLAPSE [None]
  - MUSCULOSKELETAL PAIN [None]
  - ANXIETY [None]
  - EMOTIONAL DISTRESS [None]
  - INFECTION [None]
  - PYREXIA [None]
  - PULMONARY EMBOLISM [None]
  - PAIN [None]
  - ABDOMINAL PAIN UPPER [None]
